FAERS Safety Report 16755981 (Version 2)
Quarter: 2019Q3

REPORT INFORMATION
  Report Type: Spontaneous
  Country: US (occurrence: US)
  Receive Date: 20190829
  Receipt Date: 20190916
  Transmission Date: 20191005
  Serious: Yes (Death, Hospitalization, Other)
  Sender: FDA-Public Use
  Company Number: US-OTSUKA-2019_030628

PATIENT
  Age: 18 Year
  Sex: Male

DRUGS (3)
  1. ARIPIPRAZOLE. [Suspect]
     Active Substance: ARIPIPRAZOLE
     Indication: PRODUCT USED FOR UNKNOWN INDICATION
     Dosage: 20 MG, (20 TABLETS)
     Route: 065
  2. COLCHICINE. [Suspect]
     Active Substance: COLCHICINE
     Indication: PRODUCT USED FOR UNKNOWN INDICATION
     Dosage: 0.6 MG, (60 TABLETS)
     Route: 065
  3. LORAZEPAM. [Suspect]
     Active Substance: LORAZEPAM
     Indication: PRODUCT USED FOR UNKNOWN INDICATION
     Dosage: 1 MG, (28 TABLETS)
     Route: 065

REACTIONS (15)
  - Haemodynamic instability [Unknown]
  - Overdose [Unknown]
  - White blood cell count increased [Unknown]
  - Blood creatinine increased [Unknown]
  - Cardiac arrest [Fatal]
  - Blood pressure decreased [Unknown]
  - Somnolence [Unknown]
  - Vomiting [Unknown]
  - Depressed level of consciousness [Unknown]
  - Blood bicarbonate decreased [Unknown]
  - Blood pH decreased [Unknown]
  - Cardiac dysfunction [Unknown]
  - Heart rate increased [Unknown]
  - Blood lactic acid increased [Unknown]
  - Diarrhoea [Unknown]
